FAERS Safety Report 12265873 (Version 2)
Quarter: 2017Q4

REPORT INFORMATION
  Report Type: Spontaneous
  Country: CH (occurrence: CH)
  Receive Date: 20160413
  Receipt Date: 20171012
  Transmission Date: 20180320
  Serious: Yes (Hospitalization, Other)
  Sender: FDA-Public Use
  Company Number: CH-ASTRAZENECA-2016SE36730

PATIENT
  Age: 25111 Day
  Sex: Female

DRUGS (34)
  1. VORICONAZOLE. [Concomitant]
     Active Substance: VORICONAZOLE
     Dates: start: 20160215, end: 20160217
  2. HYDROCORTISONE. [Concomitant]
     Active Substance: HYDROCORTISONE
     Dosage: 30.0MG UNKNOWN
     Route: 037
     Dates: start: 20160129, end: 20160201
  3. PROPOFOL. [Concomitant]
     Active Substance: PROPOFOL
     Dates: start: 201602
  4. NOREPINEPHRINE. [Concomitant]
     Active Substance: NOREPINEPHRINE
     Dates: start: 201602, end: 201602
  5. MERONEM [Suspect]
     Active Substance: MEROPENEM
     Route: 040
     Dates: start: 20160214, end: 20160220
  6. PIPERACILLIN AND TAZOBACTAM [Interacting]
     Active Substance: PIPERACILLIN SODIUM\TAZOBACTAM SODIUM
     Route: 040
     Dates: start: 20160204, end: 20160214
  7. VINCRISTINE [Concomitant]
     Active Substance: VINCRISTINE
     Dates: start: 20160123, end: 20160206
  8. VIMPAT [Concomitant]
     Active Substance: LACOSAMIDE
     Dates: start: 20160222
  9. KONAKION [Concomitant]
     Active Substance: PHYTONADIONE
     Dates: start: 2016
  10. PIPERACILLIN AND TAZOBACTAM [Interacting]
     Active Substance: PIPERACILLIN SODIUM\TAZOBACTAM SODIUM
     Route: 040
     Dates: start: 20160220, end: 20160304
  11. AMIKACIN [Concomitant]
     Active Substance: AMIKACIN
     Dosage: 900.0MG UNKNOWN
     Dates: start: 20160219, end: 20160219
  12. MIDAZOLAM [Concomitant]
     Active Substance: MIDAZOLAM HYDROCHLORIDE
     Dates: start: 201602, end: 201603
  13. MERONEM [Interacting]
     Active Substance: MEROPENEM
     Route: 040
  14. PREDNISONE. [Concomitant]
     Active Substance: PREDNISONE
     Route: 048
     Dates: start: 20160119, end: 20160129
  15. BACTRIM [Concomitant]
     Active Substance: SULFAMETHOXAZOLE\TRIMETHOPRIM
     Route: 048
     Dates: start: 20160119, end: 20160220
  16. AMBISOME [Concomitant]
     Active Substance: AMPHOTERICIN B
     Route: 040
     Dates: start: 20160217, end: 20160309
  17. INSULINE ACTRAPID [Concomitant]
     Dates: start: 201602, end: 201603
  18. METHOTREXATE SODIUM. [Suspect]
     Active Substance: METHOTREXATE SODIUM
     Indication: B-CELL TYPE ACUTE LEUKAEMIA
     Dosage: 15.0MG UNKNOWN
     Route: 037
     Dates: start: 20160121, end: 20160201
  19. ASPARAGINASE [Suspect]
     Active Substance: ASPARAGINASE
     Indication: B-CELL TYPE ACUTE LEUKAEMIA
     Dosage: 10600.0IU UNKNOWN
     Route: 040
     Dates: start: 20160123, end: 20160211
  20. CYTARABINE. [Suspect]
     Active Substance: CYTARABINE
     Indication: B-CELL TYPE ACUTE LEUKAEMIA
     Dosage: 30.0MG UNKNOWN
     Route: 037
     Dates: start: 20160129, end: 20160201
  21. DAUNORUBICIN [Concomitant]
     Active Substance: DAUNORUBICIN
     Dates: start: 20160123, end: 20160207
  22. CYCLOPHOSPHAMIDE. [Concomitant]
     Active Substance: CYCLOPHOSPHAMIDE
     Dates: start: 20160123, end: 20160206
  23. GRANOCYTE [Concomitant]
     Active Substance: LENOGRASTIM
     Route: 058
     Dates: start: 201601, end: 20160304
  24. ONDANSETRON [Concomitant]
     Active Substance: ONDANSETRON
     Dates: start: 201601
  25. FLUCONAZOLE. [Concomitant]
     Active Substance: FLUCONAZOLE
     Dosage: 400.0MG UNKNOWN
     Route: 048
     Dates: start: 20160119, end: 20160216
  26. KEPPRA [Concomitant]
     Active Substance: LEVETIRACETAM
     Dates: start: 20160215
  27. RIVOTRIL [Concomitant]
     Active Substance: CLONAZEPAM
     Dates: start: 20160222, end: 20160304
  28. RANITIDINE. [Concomitant]
     Active Substance: RANITIDINE
     Dates: start: 20160215, end: 20160307
  29. FENTANYL. [Concomitant]
     Active Substance: FENTANYL
     Dates: start: 201602, end: 201603
  30. NICARDIPINE [Concomitant]
     Active Substance: NICARDIPINE
     Dates: start: 201602, end: 201603
  31. RITUXIMAB. [Concomitant]
     Active Substance: RITUXIMAB
     Route: 040
     Dates: start: 20160123, end: 20160204
  32. ALLOPURINOL. [Concomitant]
     Active Substance: ALLOPURINOL
     Dates: start: 20160119
  33. METOCLOPRAMIDE. [Concomitant]
     Active Substance: METOCLOPRAMIDE
     Dates: start: 201601
  34. ACICLOVIR [Concomitant]
     Active Substance: ACYCLOVIR
     Route: 040
     Dates: start: 20160119, end: 20160222

REACTIONS (15)
  - Bronchopulmonary aspergillosis [Unknown]
  - Drug interaction [Unknown]
  - Neutropenic colitis [Unknown]
  - Encephalopathy [Not Recovered/Not Resolved]
  - Bacteraemia [Unknown]
  - Pyrexia [Unknown]
  - Altered state of consciousness [Not Recovered/Not Resolved]
  - Hyperammonaemia [Recovered/Resolved]
  - Pseudomonas infection [Unknown]
  - Anorectal cellulitis [Unknown]
  - Status epilepticus [Recovering/Resolving]
  - Agranulocytosis [Unknown]
  - Encephalitis [Not Recovered/Not Resolved]
  - Epilepsy [Recovering/Resolving]
  - Sepsis [Unknown]

NARRATIVE: CASE EVENT DATE: 20160203
